FAERS Safety Report 7245110-9 (Version None)
Quarter: 2011Q1

REPORT INFORMATION
  Report Type: 
  Country: None (occurrence: None)
  Receive Date: 20110118
  Receipt Date: 20101129
  Transmission Date: 20110831
  Serious: Yes (Other)
  Sender: FDA-Public Use
  Company Number: 2010P1002547

PATIENT
  Age: 72 Year
  Sex: Female
  Weight: 81.6475 kg

DRUGS (19)
  1. SIMVASTATIN [Concomitant]
  2. KLOR-CON [Concomitant]
  3. CARDIZEM [Concomitant]
  4. LEVOTHYROXINE [Concomitant]
  5. ACETYLSALICYLIC ACID [Concomitant]
  6. OMEGA FISH OIL [Concomitant]
  7. DIAZEPAM [Concomitant]
  8. VITAMIN D [Concomitant]
  9. AMBIEN CR [Concomitant]
  10. SPIRONOLACTONE [Concomitant]
  11. VITAMIN A [Concomitant]
  12. LIDOCAINE [Concomitant]
  13. AMITRIPTYLINE HCL [Concomitant]
  14. PERCOCET [Concomitant]
  15. LASIX [Concomitant]
  16. MULTI-VITAMIN [Concomitant]
  17. FENTANYL-25 [Suspect]
     Indication: PAIN MANAGEMENT
     Dosage: 25 MCG;HR;Q3D;TDER
     Route: 062
     Dates: start: 20050101
  18. OSTEO BI-FLEX [Concomitant]
  19. PREV MEDS [Concomitant]

REACTIONS (11)
  - LETHARGY [None]
  - LACERATION [None]
  - FALL [None]
  - BALANCE DISORDER [None]
  - HEMIPARESIS [None]
  - PRODUCT QUALITY ISSUE [None]
  - DIZZINESS [None]
  - BURNING SENSATION [None]
  - PARAESTHESIA [None]
  - CEREBROVASCULAR ACCIDENT [None]
  - PAIN [None]
